FAERS Safety Report 23387639 (Version 1)
Quarter: 2024Q1

REPORT INFORMATION
  Report Type: Spontaneous
  Country: US (occurrence: US)
  Receive Date: 20240110
  Receipt Date: 20240110
  Transmission Date: 20240410
  Serious: Yes (Hospitalization, Other)
  Sender: FDA-Public Use
  Company Number: US-SA-2024SA005753

PATIENT
  Age: 52 Year
  Sex: Female

DRUGS (6)
  1. PLAVIX [Suspect]
     Active Substance: CLOPIDOGREL BISULFATE
     Indication: Product used for unknown indication
     Dosage: UNK
  2. AYVAKIT [Suspect]
     Active Substance: AVAPRITINIB
     Indication: Advanced systemic mastocytosis
     Dosage: 50 MG, QD
     Route: 048
     Dates: start: 20210928
  3. AYVAKIT [Suspect]
     Active Substance: AVAPRITINIB
     Dosage: 50 MG, QD
     Route: 048
     Dates: start: 20210928
  4. AYVAKIT [Suspect]
     Active Substance: AVAPRITINIB
     Dosage: 50 MG, QD
     Route: 048
     Dates: start: 20230612
  5. AYVAKIT [Suspect]
     Active Substance: AVAPRITINIB
     Dosage: 50 MG, QD
     Route: 048
     Dates: start: 20230612
  6. FARXIGA [Concomitant]
     Active Substance: DAPAGLIFLOZIN PROPANEDIOL

REACTIONS (17)
  - Coronary artery occlusion [Unknown]
  - Spinal fracture [Unknown]
  - Renal injury [Unknown]
  - Renal impairment [Unknown]
  - White blood cell count increased [Unknown]
  - Haematocrit decreased [Unknown]
  - Red blood cell count decreased [Unknown]
  - Blood urea abnormal [Recovered/Resolved]
  - Feeling abnormal [Unknown]
  - Troponin increased [Unknown]
  - Osteoporosis [Unknown]
  - Fall [Unknown]
  - Humerus fracture [Unknown]
  - Blood creatinine increased [Unknown]
  - Haemoglobin decreased [Unknown]
  - Chest pain [Unknown]
  - Product dose omission issue [Unknown]

NARRATIVE: CASE EVENT DATE: 20220901
